FAERS Safety Report 8384678-6 (Version None)
Quarter: 2012Q2

REPORT INFORMATION
  Report Type: 
  Country: None (occurrence: None)
  Receive Date: 20120524
  Receipt Date: 20120514
  Transmission Date: 20120825
  Serious: Yes (Hospitalization, Other)
  Sender: FDA-Public Use
  Company Number: US-ELI_LILLY_AND_COMPANY-US201204005534

PATIENT
  Age: 61 Year
  Sex: Male

DRUGS (3)
  1. HUMALOG [Suspect]
     Indication: TYPE 1 DIABETES MELLITUS
     Dosage: UNK
     Route: 058
  2. HUMALOG [Suspect]
     Dosage: UNK
     Route: 058
  3. DEMEROL [Concomitant]
     Indication: COLONOSCOPY

REACTIONS (8)
  - BLOOD GLUCOSE INCREASED [None]
  - APPENDICITIS PERFORATED [None]
  - NECROTISING FASCIITIS [None]
  - SURGERY [None]
  - EXOSTOSIS [None]
  - SCAR EXCISION [None]
  - DRUG EFFECT DECREASED [None]
  - WEIGHT DECREASED [None]
